FAERS Safety Report 21937795 (Version 1)
Quarter: 2023Q1

REPORT INFORMATION
  Report Type: Spontaneous
  Country: US (occurrence: None)
  Receive Date: 20230201
  Receipt Date: 20230201
  Transmission Date: 20230418
  Serious: No
  Sender: FDA-Public Use
  Company Number: None

PATIENT
  Age: 25 Year
  Sex: Male
  Weight: 77 kg

DRUGS (1)
  1. STELARA [Suspect]
     Active Substance: USTEKINUMAB
     Indication: Crohn^s disease
     Dosage: OTHER FREQUENCY : 8 WEEKLY;?
     Route: 058
     Dates: start: 20170209

REACTIONS (2)
  - Penile size reduced [None]
  - Sexual dysfunction [None]

NARRATIVE: CASE EVENT DATE: 20230101
